FAERS Safety Report 10039791 (Version 1)
Quarter: 2014Q1

REPORT INFORMATION
  Report Type: Report from Study
  Country: DE (occurrence: DE)
  Receive Date: 20140326
  Receipt Date: 20140326
  Transmission Date: 20141002
  Serious: Yes (Hospitalization)
  Sender: FDA-Public Use
  Company Number: DE-JNJFOC-20140315043

PATIENT
  Age: 70 Year
  Sex: Female
  Weight: 49 kg

DRUGS (9)
  1. XARELTO [Suspect]
     Indication: ATRIAL FIBRILLATION
     Route: 048
     Dates: start: 20130115
  2. XARELTO [Suspect]
     Indication: CEREBROVASCULAR ACCIDENT PROPHYLAXIS
     Route: 048
     Dates: start: 20130115
  3. TORASEMID [Concomitant]
     Route: 065
     Dates: start: 200905
  4. LANITOP [Concomitant]
     Route: 065
     Dates: start: 2010
  5. VALSARTAN [Concomitant]
     Route: 065
     Dates: start: 200507
  6. OMEPRAZOLE [Concomitant]
     Route: 065
     Dates: start: 201006
  7. METOPROLOL SUCCINATE [Concomitant]
     Route: 065
     Dates: start: 200502
  8. SPIRONOLACTON [Concomitant]
     Route: 065
     Dates: start: 200805
  9. SIMVASTATIN [Concomitant]
     Route: 065
     Dates: start: 2010

REACTIONS (2)
  - Diverticulitis [Recovered/Resolved]
  - Gastrointestinal haemorrhage [Recovered/Resolved]
